FAERS Safety Report 22163719 (Version 1)
Quarter: 2023Q2

REPORT INFORMATION
  Report Type: Spontaneous
  Country: US (occurrence: US)
  Receive Date: 20230401
  Receipt Date: 20230401
  Transmission Date: 20230721
  Serious: No
  Sender: FDA-Public Use
  Company Number: US-THEA-2022002011

PATIENT
  Age: 89 Year
  Sex: Female

DRUGS (1)
  1. COSOPT PF [Suspect]
     Active Substance: DORZOLAMIDE HYDROCHLORIDE\TIMOLOL MALEATE
     Indication: Ocular discomfort
     Route: 047
     Dates: start: 20220916, end: 20220921

REACTIONS (4)
  - Blood pressure increased [Unknown]
  - Fatigue [Unknown]
  - Dyspnoea [Unknown]
  - Eye irritation [Unknown]

NARRATIVE: CASE EVENT DATE: 20220916
